FAERS Safety Report 8021966-7 (Version None)
Quarter: 2012Q1

REPORT INFORMATION
  Report Type: 
  Country: None (occurrence: None)
  Receive Date: 20120104
  Receipt Date: 20111229
  Transmission Date: 20120608
  Serious: Yes (Hospitalization)
  Sender: FDA-Public Use
  Company Number: PHHY2011IT113523

PATIENT
  Sex: Female

DRUGS (4)
  1. LEVOTHYROXINE SODIUM [Concomitant]
     Dosage: 100 MG
  2. DESOGESTREL AND ETHINYL ESTRADIOL [Concomitant]
  3. AMOXICILLIN AND CLAVULANATE POTASSIUM [Suspect]
     Indication: PHARYNGITIS
     Dosage: 3 G, DAILY DOSE
     Route: 048
     Dates: start: 20111127, end: 20111202
  4. LEVOTHYROXINE SODIUM [Concomitant]
     Dosage: 75 MG

REACTIONS (1)
  - TOXIC SKIN ERUPTION [None]
